FAERS Safety Report 5401529-X (Version None)
Quarter: 2007Q3

REPORT INFORMATION
  Report Type: 
  Country: None (occurrence: None)
  Receive Date: 20070731
  Receipt Date: 20070720
  Transmission Date: 20080115
  Serious: Yes (Hospitalization)
  Sender: FDA-Public Use
  Company Number: CH-ROCHE-508251

PATIENT
  Age: 62 Year
  Sex: Male

DRUGS (8)
  1. VALCYTE [Suspect]
     Indication: DRUG USE FOR UNKNOWN INDICATION
     Dosage: LONG TERM USE.
     Route: 048
     Dates: end: 20070612
  2. STOCRIN [Suspect]
     Indication: HIV INFECTION
     Dosage: LONG TERM USE.
     Route: 048
     Dates: start: 20060101, end: 20070625
  3. PANTOPRAZOLE SODIUM [Suspect]
     Dosage: LONG TERM USE.
     Route: 048
     Dates: end: 20070625
  4. LAMIVUDINE [Suspect]
     Indication: HIV INFECTION
     Dosage: LONG TERM USE.
     Route: 048
     Dates: end: 20070625
  5. VIREAD [Suspect]
     Indication: HIV INFECTION
     Dosage: LONG TERM USE.
     Route: 048
     Dates: end: 20070625
  6. KEPPRA [Suspect]
     Dosage: LONG TERM USE. INDICATION REPORTED AS EPILEPSY UNSPECIFIED.
     Route: 048
     Dates: end: 20070625
  7. PRADIF [Suspect]
     Indication: PROSTATIC DISORDER
     Dosage: LONG TERM USE. INDICATION REPORTED AS DISORDER OF PROSTATE, UNSPECIFIED.
     Route: 048
     Dates: end: 20070625
  8. DURAGESIC-100 [Suspect]
     Indication: PAIN
     Dosage: LONG TERM USE. FORM REPORTED AS MEDICATED DRESSINGS, TRANSDERMAL PATCHES. DRUG REPORTED AS DUROGESI+
     Route: 065
     Dates: end: 20070625

REACTIONS (3)
  - DERMATITIS EXFOLIATIVE [None]
  - PHOTOSENSITIVITY REACTION [None]
  - RASH ERYTHEMATOUS [None]
